FAERS Safety Report 6289541-2 (Version None)
Quarter: 2009Q3

REPORT INFORMATION
  Report Type: 
  Country: None (occurrence: None)
  Receive Date: 20090730
  Receipt Date: 20090727
  Transmission Date: 20100115
  Serious: Yes (Life-Threatening, Hospitalization)
  Sender: FDA-Public Use
  Company Number: GB-JNJFOC-20090708114

PATIENT
  Age: 59 Year
  Sex: Male

DRUGS (1)
  1. RISPERDAL [Suspect]
     Indication: SCHIZOPHRENIA
     Route: 030

REACTIONS (3)
  - DIARRHOEA [None]
  - PULMONARY EMBOLISM [None]
  - UPPER RESPIRATORY TRACT INFECTION [None]
